FAERS Safety Report 16347529 (Version 1)
Quarter: 2019Q3

REPORT INFORMATION
  Report Type: Spontaneous
  Country: US (occurrence: US)
  Receive Date: 20190522
  Receipt Date: 20190522
  Transmission Date: 20191004
  Serious: Yes (Hospitalization)
  Sender: FDA-Public Use
  Company Number: None

PATIENT
  Sex: Male

DRUGS (9)
  1. LEVOTHYROXIN, LOSARTAN/HCT [Concomitant]
  2. CLONIDINE, DOXAZOSIN [Concomitant]
  3. POT CL MICRO, SPIRONOLACT [Concomitant]
  4. SULFASALAZINE DELAYED-RELEASE [Concomitant]
     Active Substance: SULFASALAZINE
  5. GABAPENTIN, LEFLUNOMIDE [Concomitant]
  6. DULOXETINE, FUROSEMIDE [Concomitant]
  7. METOPROL, OMEPRAZOLE [Concomitant]
  8. OXYBUTYNIN, OXYCOD/APAP [Concomitant]
  9. HUMIRA [Suspect]
     Active Substance: ADALIMUMAB
     Indication: RHEUMATOID ARTHRITIS
     Dosage: ?          OTHER FREQUENCY:Q 2 WEEKS;?
     Route: 058
     Dates: start: 20190129

REACTIONS (2)
  - Hypertension [None]
  - Angina pectoris [None]
